FAERS Safety Report 9370229 (Version 1)
Quarter: 2013Q2

REPORT INFORMATION
  Report Type: Spontaneous
  Country: US (occurrence: US)
  Receive Date: 20130626
  Receipt Date: 20130626
  Transmission Date: 20140414
  Serious: Yes (Other)
  Sender: FDA-Public Use
  Company Number: US-PFIZER INC-2013189067

PATIENT
  Sex: Female

DRUGS (4)
  1. LYRICA [Suspect]
     Dosage: UNK
  2. LYRICA [Suspect]
     Dosage: 25 MG, UNK
  3. LYRICA [Suspect]
     Dosage: 100 MG, UNK
  4. KEPPRA [Concomitant]
     Dosage: UNK

REACTIONS (5)
  - Weight decreased [Unknown]
  - Herpes zoster [Unknown]
  - Drug withdrawal syndrome [Unknown]
  - Feeling abnormal [Unknown]
  - Facial pain [Not Recovered/Not Resolved]
